FAERS Safety Report 9346001 (Version 1)
Quarter: 2013Q2

REPORT INFORMATION
  Report Type: Spontaneous
  Country: FR (occurrence: FR)
  Receive Date: 20130613
  Receipt Date: 20130613
  Transmission Date: 20140414
  Serious: Yes (Hospitalization, Other)
  Sender: FDA-Public Use
  Company Number: PHHY2013FR058589

PATIENT
  Age: 58 Year
  Sex: Male

DRUGS (3)
  1. 5-FLUOROURACIL [Suspect]
     Indication: ADENOCARCINOMA GASTRIC
     Dosage: 3400 MG, OVER 48 MIN INSTEAD OF 48 HOURS
  2. CYCLOPHOSPHAMIDE [Concomitant]
     Indication: ADENOCARCINOMA GASTRIC
  3. EPIRUBICIN [Concomitant]
     Indication: ADENOCARCINOMA GASTRIC

REACTIONS (4)
  - Neutropenia [Recovered/Resolved]
  - Mucosal inflammation [Recovered/Resolved]
  - Overdose [Unknown]
  - Incorrect drug administration rate [Unknown]
